FAERS Safety Report 20445253 (Version 1)
Quarter: 2022Q1

REPORT INFORMATION
  Report Type: Other
  Country: US (occurrence: None)
  Receive Date: 20220208
  Receipt Date: 20220208
  Transmission Date: 20220423
  Serious: Yes (Hospitalization, Other)
  Sender: FDA-Public Use
  Company Number: US-ROCHE-2997679

PATIENT
  Sex: Female
  Weight: 65.830 kg

DRUGS (6)
  1. OCREVUS [Suspect]
     Active Substance: OCRELIZUMAB
     Indication: Relapsing multiple sclerosis
     Route: 042
     Dates: start: 20190108
  2. OCREVUS [Suspect]
     Active Substance: OCRELIZUMAB
     Indication: Primary progressive multiple sclerosis
  3. FOSAMAX [Concomitant]
     Active Substance: ALENDRONATE SODIUM
  4. MELOXICAM [Concomitant]
     Active Substance: MELOXICAM
  5. OXYBUTYNIN [Concomitant]
     Active Substance: OXYBUTYNIN
  6. OXCARBAZEPINE [Concomitant]
     Active Substance: OXCARBAZEPINE

REACTIONS (5)
  - Wound [Not Recovered/Not Resolved]
  - Sepsis [Unknown]
  - Trigeminal neuralgia [Recovered/Resolved]
  - Dermatitis [Unknown]
  - Asthenia [Unknown]
